FAERS Safety Report 12227402 (Version 1)
Quarter: 2016Q1

REPORT INFORMATION
  Report Type: Spontaneous
  Country: ZA (occurrence: ZA)
  Receive Date: 20160331
  Receipt Date: 20160331
  Transmission Date: 20160526
  Serious: Yes (Other)
  Sender: FDA-Public Use
  Company Number: PHHY2016ZA024372

PATIENT
  Age: 43 Year
  Sex: Male

DRUGS (1)
  1. TASIGNA [Suspect]
     Active Substance: NILOTINIB
     Indication: CHRONIC MYELOID LEUKAEMIA
     Dosage: 200 MG, BID
     Route: 065

REACTIONS (8)
  - Chest pain [Unknown]
  - Colitis microscopic [Unknown]
  - Pruritus [Unknown]
  - Abdominal pain [Unknown]
  - Dyspnoea [Unknown]
  - Acne [Unknown]
  - Alopecia [Unknown]
  - Fatigue [Unknown]
